APPROVED DRUG PRODUCT: RASAGILINE MESYLATE
Active Ingredient: RASAGILINE MESYLATE
Strength: EQ 0.5MG BASE
Dosage Form/Route: TABLET;ORAL
Application: A201889 | Product #001 | TE Code: AB
Applicant: ALKEM LABORATORIES LTD
Approved: Oct 30, 2017 | RLD: No | RS: No | Type: RX